FAERS Safety Report 16635032 (Version 1)
Quarter: 2019Q3

REPORT INFORMATION
  Report Type: Spontaneous
  Country: DE (occurrence: DE)
  Receive Date: 20190726
  Receipt Date: 20190726
  Transmission Date: 20191004
  Serious: Yes (Other)
  Sender: FDA-Public Use
  Company Number: DE-BAUSCH-BL-2019-021381

PATIENT
  Age: 23 Year
  Sex: Male

DRUGS (2)
  1. FLUDROCORTISONE [Suspect]
     Active Substance: FLUDROCORTISONE
     Indication: ADRENOGENITAL SYNDROME
     Route: 065
  2. PREDNISOLONE. [Suspect]
     Active Substance: PREDNISOLONE
     Indication: ADRENOGENITAL SYNDROME
     Route: 065

REACTIONS (3)
  - Hormone level abnormal [Recovering/Resolving]
  - Treatment noncompliance [Unknown]
  - Testicular neoplasm [Recovering/Resolving]
